FAERS Safety Report 9844899 (Version 1)
Quarter: 2014Q1

REPORT INFORMATION
  Report Type: Spontaneous
  Country: US (occurrence: None)
  Receive Date: 20140123
  Receipt Date: 20140123
  Transmission Date: 20141002
  Serious: No
  Sender: FDA-Public Use
  Company Number: None

PATIENT
  Age: 43 Year
  Sex: Male

DRUGS (1)
  1. MIRVASO [Suspect]
     Indication: ROSACEA
     Dates: start: 20140116, end: 20140119

REACTIONS (2)
  - Application site erythema [None]
  - Feeling hot [None]
